FAERS Safety Report 4279048-6 (Version None)
Quarter: 2004Q1

REPORT INFORMATION
  Report Type: 
  Country: None (occurrence: None)
  Receive Date: 20040122
  Receipt Date: 20040112
  Transmission Date: 20041129
  Serious: Yes (Other)
  Sender: FDA-Public Use
  Company Number: 2004002298

PATIENT
  Age: 49 Year
  Sex: Female
  Weight: 62.5964 kg

DRUGS (3)
  1. DILANTIN KAPSEAL [Suspect]
     Indication: EPILEPSY
     Dosage: 400 MG (BID), ORAL
     Route: 048
     Dates: start: 19970101
  2. ATENOLOL [Concomitant]
  3. TRIAMTERENE (TRIAMTERENE) [Concomitant]

REACTIONS (5)
  - ANTICONVULSANT DRUG LEVEL DECREASED [None]
  - CONVULSION [None]
  - FEELING ABNORMAL [None]
  - MEDICATION ERROR [None]
  - PHARMACEUTICAL PRODUCT COMPLAINT [None]
